FAERS Safety Report 18764696 (Version 1)
Quarter: 2021Q1

REPORT INFORMATION
  Report Type: Spontaneous
  Country: CZ (occurrence: CZ)
  Receive Date: 20210120
  Receipt Date: 20210120
  Transmission Date: 20210419
  Serious: Yes (Death, Other)
  Sender: FDA-Public Use
  Company Number: CZ-BAYER-2021-026195

PATIENT
  Sex: Male

DRUGS (2)
  1. STIVARGA [Suspect]
     Active Substance: REGORAFENIB
     Indication: COLORECTAL CANCER
     Dosage: DAILY DOSE 120 MG
  2. STIVARGA [Suspect]
     Active Substance: REGORAFENIB
     Indication: COLORECTAL CANCER
     Dosage: DAILY DOSE  160 MG FOR 21 DAYS
     Dates: start: 201512

REACTIONS (6)
  - Hepatic failure [Fatal]
  - Anaemia [None]
  - Sepsis [Fatal]
  - Metastases to lung [None]
  - Skin toxicity [None]
  - Metastases to liver [None]
